FAERS Safety Report 4550923-8 (Version None)
Quarter: 2004Q4

REPORT INFORMATION
  Report Type: 
  Country: None (occurrence: None)
  Receive Date: 20041217
  Receipt Date: 20040902
  Transmission Date: 20050328
  Serious: No
  Sender: FDA-Public Use
  Company Number: 2004-BP-07762BP

PATIENT
  Age: 55 Year
  Sex: Female
  Weight: 63.5 kg

DRUGS (9)
  1. SPIRIVA [Suspect]
     Indication: CHRONIC OBSTRUCTIVE AIRWAYS DISEASE
     Dosage: 18 MCG (18 MCG, 18 MCG O AM), IH
     Route: 055
     Dates: start: 20040622, end: 20040902
  2. ZOCOR [Concomitant]
  3. VERAPAMIL [Concomitant]
  4. ADVAIR (SERETIDE MITE) [Concomitant]
  5. PLAVIX [Concomitant]
  6. OSOSORBIDE (ISOSORBIDE) [Concomitant]
  7. LISINOPRIL [Concomitant]
  8. ACETYLSALICYLIC ACID SRT [Concomitant]
  9. NITRO-BID (GLYCERYL TRINITRATE) [Concomitant]

REACTIONS (1)
  - DYSPNOEA [None]
